FAERS Safety Report 7034702-8 (Version None)
Quarter: 2010Q4

REPORT INFORMATION
  Report Type: 
  Country: None (occurrence: None)
  Receive Date: 20101008
  Receipt Date: 20101001
  Transmission Date: 20110411
  Serious: Yes (Other)
  Sender: FDA-Public Use
  Company Number: US-SANOFI-AVENTIS-2010SA060080

PATIENT
  Age: 43 Year
  Sex: Male

DRUGS (9)
  1. LANTUS [Suspect]
     Dosage: DOSE:35 UNIT(S)
     Route: 058
     Dates: start: 20100901, end: 20100901
  2. LANTUS [Suspect]
     Dosage: 35-40 UNITS
     Route: 058
     Dates: start: 20100301, end: 20100501
  3. LANTUS [Suspect]
     Dosage: 35-40 UNITS
     Route: 058
     Dates: start: 20100101
  4. LANTUS [Suspect]
     Dosage: 35-40-UNITS
     Route: 058
     Dates: start: 20090301, end: 20090301
  5. SOLOSTAR [Suspect]
     Dates: start: 20100301, end: 20100501
  6. SOLOSTAR [Suspect]
     Dates: start: 20100901, end: 20100901
  7. HUMALOG [Concomitant]
  8. METFORMIN [Concomitant]
  9. REGULAR INSULIN [Concomitant]

REACTIONS (3)
  - IRRITABILITY [None]
  - RETINAL HAEMORRHAGE [None]
  - VISUAL IMPAIRMENT [None]
